FAERS Safety Report 16194714 (Version 2)
Quarter: 2019Q2

REPORT INFORMATION
  Report Type: Spontaneous
  Country: JP (occurrence: JP)
  Receive Date: 20190414
  Receipt Date: 20190526
  Transmission Date: 20190711
  Serious: Yes (Other)
  Sender: FDA-Public Use
  Company Number: JP-AMGEN-JPNSP2019059102

PATIENT
  Age: 68 Year
  Sex: Female

DRUGS (2)
  1. MINOMYCIN [Suspect]
     Active Substance: MINOCYCLINE HYDROCHLORIDE
     Indication: PRODUCT USED FOR UNKNOWN INDICATION
     Dosage: UNK
     Route: 048
  2. VECTIBIX [Suspect]
     Active Substance: PANITUMUMAB
     Indication: COLORECTAL CANCER METASTATIC
     Dosage: UNK
     Route: 041
     Dates: start: 201902

REACTIONS (5)
  - Disease progression [Unknown]
  - Feeling abnormal [Unknown]
  - Pruritus [Not Recovered/Not Resolved]
  - Colorectal cancer metastatic [Unknown]
  - Paronychia [Not Recovered/Not Resolved]

NARRATIVE: CASE EVENT DATE: 201903
